FAERS Safety Report 19579043 (Version 2)
Quarter: 2021Q3

REPORT INFORMATION
  Report Type: Report from Study
  Country: US (occurrence: US)
  Receive Date: 20210719
  Receipt Date: 20210905
  Transmission Date: 20211014
  Serious: Yes (Hospitalization)
  Sender: FDA-Public Use
  Company Number: NVSC2021US156381

PATIENT
  Sex: Male

DRUGS (1)
  1. ENTRESTO [Suspect]
     Active Substance: SACUBITRIL\VALSARTAN
     Indication: PRODUCT USED FOR UNKNOWN INDICATION
     Dosage: 0.5 DF, BID (1/2 OF THE 24/26MG TABS)
     Route: 065
     Dates: start: 202106

REACTIONS (3)
  - Atrial fibrillation [Unknown]
  - Prescribed underdose [Unknown]
  - Wrong technique in product usage process [Unknown]
